FAERS Safety Report 4587840-3 (Version None)
Quarter: 2005Q1

REPORT INFORMATION
  Report Type: 
  Country: None (occurrence: None)
  Receive Date: 20050125
  Receipt Date: 20041025
  Transmission Date: 20050727
  Serious: No
  Sender: FDA-Public Use
  Company Number: USA040978260

PATIENT
  Age: 74 Year
  Sex: Female
  Weight: 62 kg

DRUGS (6)
  1. FORTEO [Suspect]
     Dosage: 20 UG/1 DAY
     Dates: start: 20040201, end: 20040601
  2. PERSANTINE [Concomitant]
  3. CITRACAL (CALCIUM CITRATE) [Concomitant]
  4. NEXIUM [Concomitant]
  5. ATACAND [Concomitant]
  6. XALATAN [Concomitant]

REACTIONS (1)
  - BLOOD ALKALINE PHOSPHATASE INCREASED [None]
